FAERS Safety Report 8936369 (Version 3)
Quarter: 2012Q4

REPORT INFORMATION
  Report Type: 
  Country: US (occurrence: US)
  Receive Date: 20121130
  Receipt Date: 20121217
  Transmission Date: 20130627
  Serious: Yes (Death, Other)
  Sender: FDA-Public Use
  Company Number: US-JNJFOC-20121114157

PATIENT
  Sex: Female

DRUGS (14)
  1. DOXORUBICIN [Suspect]
     Indication: BREAST CANCER
     Dosage: AC plus paclitaxel and gemcitabine arm for 4 cycles
     Route: 042
  2. DOXORUBICIN [Suspect]
     Indication: BREAST CANCER
     Dosage: TAC arm for 6 cycles
     Route: 042
  3. DOXORUBICIN [Suspect]
     Indication: BREAST CANCER
     Dosage: AC plus dose dense paclitaxel arm for 4 cycles
     Route: 042
  4. DOCETAXEL [Suspect]
     Indication: BREAST CANCER
     Dosage: TAC arm
     Route: 065
  5. CYCLOPHOSPHAMIDE [Suspect]
     Indication: BREAST CANCER
     Dosage: AC plus paclitaxel arm for 4 cycles
     Route: 065
  6. CYCLOPHOSPHAMIDE [Suspect]
     Indication: BREAST CANCER
     Dosage: AC plus paclitaxel and gemcitabine arm for 4 cycles
     Route: 065
  7. CYCLOPHOSPHAMIDE [Suspect]
     Indication: BREAST CANCER
     Dosage: TAC arm for 6 cycles
     Route: 065
  8. PACLITAXEL [Suspect]
     Indication: BREAST CANCER
     Dosage: AC plus paclitaxel arm for 4 cycles
     Route: 065
  9. PACLITAXEL [Suspect]
     Indication: BREAST CANCER
     Dosage: AC plus paclitaxel and gemcitabine arm for 4 cycles
     Route: 065
  10. GEMCITABINE [Suspect]
     Indication: BREAST CANCER
     Dosage: AC plus paclitaxel and gemcitabine arm for 4 cycles
     Route: 065
  11. GEMCITABINE [Suspect]
     Indication: BREAST CANCER
     Dosage: AC plus paclitaxel arm for 4 cycles
     Route: 065
  12. PEGFILGRASTIM [Concomitant]
     Route: 065
  13. ERYTHROPOIETIN [Concomitant]
     Indication: HAEMOGLOBIN DECREASED
     Route: 065
  14. FILGRASTIM [Concomitant]
     Route: 065

REACTIONS (11)
  - Death [Fatal]
  - Febrile neutropenia [Unknown]
  - Left ventricular dysfunction [Unknown]
  - Diarrhoea [Unknown]
  - Peripheral sensory neuropathy [Unknown]
  - Hypersensitivity [Unknown]
  - Alanine aminotransferase increased [Unknown]
  - Rash [Unknown]
  - Acute myeloid leukaemia [Unknown]
  - Myelodysplastic syndrome [Unknown]
  - Anaemia [Unknown]
